FAERS Safety Report 8391386-4 (Version None)
Quarter: 2012Q2

REPORT INFORMATION
  Report Type: 
  Country: None (occurrence: None)
  Receive Date: 20120529
  Receipt Date: 20120517
  Transmission Date: 20120825
  Serious: Yes (Hospitalization)
  Sender: FDA-Public Use
  Company Number: US-JNJFOC-20120515668

PATIENT
  Sex: Female
  Weight: 40.82 kg

DRUGS (4)
  1. DURAGESIC-100 [Suspect]
     Route: 062
  2. DURAGESIC-100 [Suspect]
     Indication: PAIN
     Route: 062
  3. OXYCONTIN [Suspect]
     Indication: PAIN
     Route: 065
  4. DURAGESIC-100 [Suspect]
     Route: 062

REACTIONS (15)
  - BURSITIS [None]
  - FALL [None]
  - DRUG INEFFECTIVE [None]
  - SPINAL FUSION SURGERY [None]
  - WRONG TECHNIQUE IN DRUG USAGE PROCESS [None]
  - JOINT DISLOCATION [None]
  - DRUG RESISTANCE [None]
  - WEIGHT INCREASED [None]
  - HIATUS HERNIA [None]
  - JOINT STIFFNESS [None]
  - HUMERUS FRACTURE [None]
  - OSTEONECROSIS [None]
  - ULCER HAEMORRHAGE [None]
  - SURGERY [None]
  - PRODUCT QUALITY ISSUE [None]
